FAERS Safety Report 4908755-4 (Version None)
Quarter: 2006Q1

REPORT INFORMATION
  Report Type: 
  Country: None (occurrence: None)
  Receive Date: 20060210
  Receipt Date: 20051110
  Transmission Date: 20060701
  Serious: No
  Sender: FDA-Public Use
  Company Number: US-GLAXOSMITHKLINE-A0581812A

PATIENT
  Age: 56 Year
  Sex: Female

DRUGS (5)
  1. PAXIL CR [Suspect]
     Indication: DEPRESSION
     Dosage: 37.5MG PER DAY
     Route: 048
     Dates: start: 20050926
  2. AVANDIA [Suspect]
     Dosage: 4MG TWICE PER DAY
     Route: 048
     Dates: start: 20050801
  3. POTASSIUM CHLORIDE [Concomitant]
  4. COREG [Concomitant]
  5. AVAPRO [Concomitant]

REACTIONS (3)
  - ANXIETY [None]
  - OEDEMA [None]
  - WEIGHT INCREASED [None]
